FAERS Safety Report 4345002-9 (Version None)
Quarter: 2004Q2

REPORT INFORMATION
  Report Type: 
  Country: None (occurrence: None)
  Receive Date: 20040421
  Receipt Date: 20040421
  Transmission Date: 20050107
  Serious: Yes (Death)
  Sender: FDA-Public Use
  Company Number: None

PATIENT
  Age: 62 Year
  Sex: Male
  Weight: 82.1011 kg

DRUGS (1)
  1. RUBETICAN 1.5 MG [Suspect]
     Indication: PANCREATIC CARCINOMA METASTATIC
     Dosage: 2.0 QD FOR 5 D ORAL
     Route: 048
     Dates: start: 20031203, end: 20031212

REACTIONS (3)
  - DEHYDRATION [None]
  - PANCREATIC CARCINOMA METASTATIC [None]
  - VOMITING [None]
